FAERS Safety Report 5202821-4 (Version None)
Quarter: 2006Q4

REPORT INFORMATION
  Report Type: 
  Country: None (occurrence: None)
  Receive Date: 20061018
  Receipt Date: 20040824
  Transmission Date: 20070319
  Serious: Yes (Hospitalization)
  Sender: FDA-Public Use
  Company Number: PHEH2004US09187

PATIENT
  Age: 65 Year
  Sex: Male

DRUGS (1)
  1. ZOLEDRONATE (ZOLEDRONATE) SOLUTION FOR INJECTION [Suspect]
     Indication: METASTASES TO BONE
     Dosage: 4 MG, ONCE/SINGLE
     Dates: start: 20040817, end: 20040817

REACTIONS (5)
  - DIARRHOEA [None]
  - HYPOCALCAEMIA [None]
  - INFLUENZA LIKE ILLNESS [None]
  - NAUSEA [None]
  - VOMITING [None]
